FAERS Safety Report 7495260-7 (Version None)
Quarter: 2011Q2

REPORT INFORMATION
  Report Type: 
  Country: None (occurrence: None)
  Receive Date: 20110522
  Receipt Date: 20110509
  Transmission Date: 20111010
  Serious: Yes (Hospitalization)
  Sender: FDA-Public Use
  Company Number: JP-MYLANLABS-2011S1009669

PATIENT
  Age: 7 Decade
  Sex: Female
  Weight: 50 kg

DRUGS (5)
  1. OXALIPLATIN [Suspect]
     Indication: COLORECTAL CANCER STAGE IV
     Dosage: TOTAL DOSE 1,418 MG/M2
     Route: 065
  2. IRINOTECAN HYDROCHLORIDE [Suspect]
     Indication: COLORECTAL CANCER STAGE IV
     Route: 065
  3. FLUOROURACIL [Suspect]
     Indication: COLORECTAL CANCER STAGE IV
     Dosage: TOTAL DOSE 53,510 MG/M2
     Route: 065
  4. BEVACIZUMAB [Suspect]
     Indication: COLORECTAL CANCER STAGE IV
     Route: 065
  5. LEUCOVORIN CALCIUM [Suspect]
     Indication: COLORECTAL CANCER STAGE IV
     Dosage: TOTAL DOSE 4,542 MG/M2
     Route: 065

REACTIONS (3)
  - TRAUMATIC LUNG INJURY [None]
  - PULMONARY FIBROSIS [None]
  - RESPIRATORY FAILURE [None]
